FAERS Safety Report 21447515 (Version 1)
Quarter: 2022Q4

REPORT INFORMATION
  Report Type: Spontaneous
  Country: DE (occurrence: DE)
  Receive Date: 20221012
  Receipt Date: 20221012
  Transmission Date: 20230113
  Serious: Yes (Hospitalization)
  Sender: FDA-Public Use
  Company Number: DE-ADRED-08356-12

PATIENT
  Age: 54 Year
  Sex: Male

DRUGS (16)
  1. NEBIVOLOL [Suspect]
     Active Substance: NEBIVOLOL
     Indication: Product used for unknown indication
     Dosage: 25 MILLIGRAM DAILY; 25MG ONCE A DAY IN THE MORNING
     Route: 065
  2. SPIRONOLACTONE [Concomitant]
     Active Substance: SPIRONOLACTONE
     Indication: Product used for unknown indication
     Dosage: 100 MILLIGRAM DAILY; 100 MG ONCE A DAY IN THE MORNING
     Route: 065
  3. AZITHROMYCIN [Concomitant]
     Active Substance: AZITHROMYCIN
     Indication: Product used for unknown indication
     Dosage: 500 MG THRICE A WEEK(TUESDAY THURSDAY SATURDAY)
     Route: 065
  4. ROFLUMILAST [Concomitant]
     Active Substance: ROFLUMILAST
     Indication: Product used for unknown indication
     Dosage: 500 MILLIGRAM DAILY; 500 MG ONCE A DAY IN THE MORNING
     Route: 065
  5. NALOXONE HYDROCHLORIDE\TILIDINE HYDROCHLORIDE [Concomitant]
     Active Substance: NALOXONE HYDROCHLORIDE\TILIDINE HYDROCHLORIDE
     Indication: Product used for unknown indication
     Dosage: 2 DOSAGE FORMS DAILY; NALOXON 8MG + TILIDIN 100MG TWICE A DAY,ONE IN THE MORNING AND ONE IN THE EVEN
     Route: 065
  6. GLYCOPYRRONIUM\INDACATEROL [Concomitant]
     Active Substance: GLYCOPYRRONIUM\INDACATEROL
     Indication: Product used for unknown indication
     Dosage: 1 DOSAGE FORMS DAILY; INDACATEROL 85UG AND GLYCOPYRRONIUM 43 UG ONCE A DAY IN THE MORNING
     Route: 065
  7. THIAMIN (VITAMIN B1) [Concomitant]
     Indication: Product used for unknown indication
     Dosage: 100 MILLIGRAM DAILY; 100 MG ONCE A DAY IN THE MORNING
     Route: 065
  8. METAMIZOL [Concomitant]
     Active Substance: METAMIZOLE SODIUM
     Indication: Product used for unknown indication
     Dosage: 3000 MILLIGRAM DAILY; 1000 MG THRICE A DAY ONE IN MORNING, ONE IN THE AFTERNOON AND ONE IN THE EVENI
     Route: 065
  9. CHOLECALCIFEROL [Concomitant]
     Active Substance: CHOLECALCIFEROL
     Indication: Product used for unknown indication
     Dosage: 10000 IU (INTERNATIONAL UNIT) DAILY; 1000 IU ONCE A DAY IN THE MORNING
     Route: 065
  10. RAMIPRIL [Concomitant]
     Active Substance: RAMIPRIL
     Indication: Product used for unknown indication
     Dosage: 10 MILLIGRAM DAILY; 10 MG ONCE A DAY IN THE MORNING
     Route: 065
  11. BUDESONIDE [Concomitant]
     Active Substance: BUDESONIDE
     Indication: Product used for unknown indication
     Dosage: 2 DOSAGE FORMS DAILY; 200 UG, 1-0-1-0
  12. ALENDRONATE [Concomitant]
     Active Substance: ALENDRONATE SODIUM
     Indication: Product used for unknown indication
     Dosage: 70 MG, ONCE A WEEK
     Route: 065
  13. ALBUTEROL [Concomitant]
     Active Substance: ALBUTEROL
     Indication: Product used for unknown indication
     Dosage: IF NECESSARY
  14. KALINOR [Concomitant]
     Indication: Product used for unknown indication
     Dosage: 2 DOSAGE FORMS DAILY; 1-0-1-0, SUSTAINED-RELEASE CAPSULES
  15. AMLODIPINE BESYLATE [Concomitant]
     Active Substance: AMLODIPINE BESYLATE
     Indication: Product used for unknown indication
     Dosage: 10 MILLIGRAM DAILY; 10 MG, 1-0-0-0
  16. CALCIUM CARBONATE [Concomitant]
     Active Substance: CALCIUM CARBONATE
     Indication: Product used for unknown indication
     Dosage: 1 DOSAGE FORMS DAILY; ONCE A DAY
     Route: 065

REACTIONS (2)
  - Dyspnoea [Unknown]
  - Chronic obstructive pulmonary disease [Unknown]

NARRATIVE: CASE EVENT DATE: 20210102
